FAERS Safety Report 19790899 (Version 1)
Quarter: 2021Q3

REPORT INFORMATION
  Report Type: Spontaneous
  Country: US (occurrence: US)
  Receive Date: 20210906
  Receipt Date: 20210906
  Transmission Date: 20211014
  Serious: Yes (Death, Life-Threatening, Hospitalization, Other)
  Sender: FDA-Public Use
  Company Number: US-GRANULES-US-2021GRALIT00471

PATIENT
  Age: 41 Year
  Sex: Female

DRUGS (6)
  1. N?ACETYLCYSTEINE [Interacting]
     Active Substance: ACETYLCYSTEINE
     Route: 065
  2. ACETAMINOPHEN. [Suspect]
     Active Substance: ACETAMINOPHEN
     Route: 048
  3. N?ACETYLCYSTEINE [Interacting]
     Active Substance: ACETYLCYSTEINE
     Route: 065
  4. FENTANYL. [Interacting]
     Active Substance: FENTANYL
     Indication: SEDATION
     Route: 065
  5. N?ACETYLCYSTEINE [Interacting]
     Active Substance: ACETYLCYSTEINE
     Route: 040
  6. MIDAZOLAM. [Interacting]
     Active Substance: MIDAZOLAM
     Indication: SEDATION
     Route: 065

REACTIONS (5)
  - Toxicity to various agents [Fatal]
  - Hepatic function abnormal [Fatal]
  - Intentional overdose [Fatal]
  - Multiple organ dysfunction syndrome [Fatal]
  - Metabolic acidosis [Fatal]
